FAERS Safety Report 5805358 (Version 15)
Quarter: 2012Q4

REPORT INFORMATION
  Report Type: 
  Country: US (occurrence: US)
  Receive Date: 20050527
  Receipt Date: 20120928
  Transmission Date: 20130627
  Serious: Yes (Hospitalization, Other)
  Sender: FDA-Public Use
  Company Number: PHEH2005US05719

PATIENT
  Age: 39 None
  Sex: Male
  Weight: 78.46 kg

DRUGS (41)
  1. ZOMETA [Suspect]
     Indication: MULTIPLE MYELOMA
     Dosage: 4 mg, QMO
     Route: 042
     Dates: start: 2002, end: 20030321
  2. ZOMETA [Suspect]
     Indication: METASTASES TO BONE
     Dosage: 4 mg, QMO
     Route: 042
     Dates: end: 20050519
  3. ZOMETA [Suspect]
     Indication: HYPERCALCAEMIA
  4. VINCRISTINE + ADRIAMYCIN + DEXAMETHASONE [Concomitant]
     Indication: MULTIPLE MYELOMA
     Dates: end: 20020410
  5. MELPHALAN [Concomitant]
     Indication: MULTIPLE MYELOMA
     Dates: start: 20020515
  6. WELLBUTRIN [Concomitant]
     Indication: DEPRESSION
     Dosage: 150 mg, QD
     Route: 048
  7. NEXIUM [Concomitant]
     Dosage: 40 mg, QHS
     Route: 048
  8. SYNTHROID [Concomitant]
     Indication: HYPOTHYROIDISM
     Dosage: 150 mcg, QD
     Route: 048
  9. LOPRESSOR [Concomitant]
     Indication: HYPERTENSION
     Dosage: 12.5 mg, QD
     Route: 048
  10. VALTREX [Concomitant]
     Dosage: 500 mg, TID
     Route: 048
  11. PERCOCET [Concomitant]
  12. NEURONTIN [Concomitant]
     Dosage: 300 mg, TID
     Route: 048
  13. ATIVAN [Concomitant]
  14. MARIJUANA [Concomitant]
  15. ZOLOFT [Concomitant]
  16. FLOMAX [Concomitant]
  17. LUNESTA [Concomitant]
  18. PROTONIX [Concomitant]
  19. DURAGESIC [Concomitant]
  20. EFFEXOR [Concomitant]
  21. METHADONE [Concomitant]
  22. ZOLOFT (SERTRALINE HYDROCHLORIDE) [Concomitant]
  23. VANCOMYCIN [Concomitant]
  24. VALIUM [Concomitant]
  25. MAALOX [Concomitant]
  26. BENADRYL ^ACHE^ [Concomitant]
  27. COMPAZINE [Concomitant]
  28. AMBIEN [Concomitant]
  29. PHENERGAN [Concomitant]
  30. VIOXX [Concomitant]
  31. LIDOCAINE [Concomitant]
  32. ACIPHEX [Concomitant]
  33. ONDANSETRON [Concomitant]
  34. PROMETHAZINE [Concomitant]
  35. DILAUDID [Concomitant]
  36. ALLOPURINOL [Concomitant]
  37. BACTRIM [Concomitant]
  38. CAPTOPRIL [Concomitant]
  39. CEFEPIME [Concomitant]
  40. SEPTRA [Concomitant]
  41. CHEMOTHERAPEUTICS [Concomitant]

REACTIONS (69)
  - Cardiomyopathy [Unknown]
  - Catheterisation cardiac [Unknown]
  - Left ventricular hypertrophy [Unknown]
  - Mitral valve incompetence [Unknown]
  - Ventricular arrhythmia [Unknown]
  - Ventricular tachycardia [Unknown]
  - Cardiac disorder [Unknown]
  - Osteonecrosis of jaw [Unknown]
  - Osteomyelitis [Unknown]
  - Oral disorder [Unknown]
  - Bone disorder [Unknown]
  - Pain in jaw [Unknown]
  - Periodontitis [Recovered/Resolved]
  - Dental caries [Recovered/Resolved]
  - General physical health deterioration [Unknown]
  - Decreased interest [Unknown]
  - Anxiety [Unknown]
  - Mental status changes [Unknown]
  - Hallucination [Unknown]
  - Drug abuse [Unknown]
  - Drug screen positive [Unknown]
  - Mental disorder [Unknown]
  - Cyst [Unknown]
  - Musculoskeletal discomfort [Unknown]
  - Prostatitis [Unknown]
  - Headache [Unknown]
  - Pyrexia [Recovered/Resolved]
  - Impaired healing [Unknown]
  - Wound dehiscence [Unknown]
  - Denture wearer [Unknown]
  - Mouth ulceration [Unknown]
  - Bone swelling [Unknown]
  - Cellulitis [Unknown]
  - Primary sequestrum [Unknown]
  - Abscess jaw [Unknown]
  - Convulsion [Unknown]
  - Ataxia [Unknown]
  - Flushing [Unknown]
  - Excoriation [Unknown]
  - Rhinitis [Unknown]
  - Productive cough [Unknown]
  - Upper-airway cough syndrome [Unknown]
  - Nasal congestion [Unknown]
  - Depression [Unknown]
  - Decubitus ulcer [Unknown]
  - Bone lesion [Unknown]
  - Device breakage [Unknown]
  - Platelet count decreased [Unknown]
  - Red blood cell count decreased [Unknown]
  - Haemoglobin decreased [Unknown]
  - Haematocrit decreased [Unknown]
  - White blood cell count increased [Unknown]
  - Blood immunoglobulin G increased [Unknown]
  - Blood alkaline phosphatase increased [Unknown]
  - Cardiomegaly [Unknown]
  - Lung disorder [Unknown]
  - Urinary retention [Unknown]
  - Erectile dysfunction [Unknown]
  - Libido decreased [Unknown]
  - Penile pain [Unknown]
  - Penis disorder [Unknown]
  - Peyronie^s disease [Unknown]
  - Hypoglycaemia [Unknown]
  - Osteolysis [Unknown]
  - Osteonecrosis [Unknown]
  - Temporomandibular joint syndrome [Unknown]
  - Influenza like illness [Unknown]
  - Rib fracture [Unknown]
  - Back pain [Not Recovered/Not Resolved]
